FAERS Safety Report 19651128 (Version 1)
Quarter: 2021Q3

REPORT INFORMATION
  Report Type: Spontaneous
  Country: JP (occurrence: JP)
  Receive Date: 20210802
  Receipt Date: 20210802
  Transmission Date: 20211014
  Serious: Yes (Hospitalization, Other)
  Sender: FDA-Public Use
  Company Number: JP-BRISTOL-MYERS SQUIBB COMPANY-BMS-2021-074621

PATIENT

DRUGS (2)
  1. OPDIVO [Suspect]
     Active Substance: NIVOLUMAB
     Indication: HYPOPHARYNGEAL CANCER
     Dosage: 240 MG
     Route: 041
     Dates: start: 20200508, end: 20210203
  2. OPDIVO [Suspect]
     Active Substance: NIVOLUMAB
     Dosage: 480 MG
     Route: 041
     Dates: start: 20210203, end: 20210623

REACTIONS (1)
  - Polychondritis [Recovered/Resolved]

NARRATIVE: CASE EVENT DATE: 20210704
